FAERS Safety Report 12413450 (Version 9)
Quarter: 2017Q2

REPORT INFORMATION
  Report Type: Spontaneous
  Country: US (occurrence: US)
  Receive Date: 20160527
  Receipt Date: 20170607
  Transmission Date: 20170830
  Serious: Yes (Life-Threatening, Hospitalization, Disabling, Other)
  Sender: FDA-Public Use
  Company Number: US-009507513-1605USA010926

PATIENT
  Age: 58 Year
  Sex: Female
  Weight: 87.98 kg

DRUGS (5)
  1. ZOCOR [Suspect]
     Active Substance: SIMVASTATIN
     Dosage: 40 MG, HS
     Dates: start: 20081103
  2. ZOCOR [Suspect]
     Active Substance: SIMVASTATIN
     Indication: HYPERLIPIDAEMIA
     Dosage: 40 MG, HS
     Route: 048
     Dates: start: 20011102, end: 20101219
  3. ZOCOR [Suspect]
     Active Substance: SIMVASTATIN
     Dosage: UNK
     Route: 048
     Dates: start: 20110209
  4. DIAMOX SEQUELS [Suspect]
     Active Substance: ACETAZOLAMIDE
     Indication: HYDROCEPHALUS
     Dosage: UNK, UNKNOWN
     Route: 065
  5. ZOCOR [Suspect]
     Active Substance: SIMVASTATIN
     Indication: HYPERLIPIDAEMIA
     Dosage: 80 MG, HS
     Route: 048
     Dates: end: 20081103

REACTIONS (57)
  - Ruptured cerebral aneurysm [Not Recovered/Not Resolved]
  - Deep vein thrombosis [Not Recovered/Not Resolved]
  - Paranoia [Unknown]
  - Palpitations [Unknown]
  - Benign breast neoplasm [Unknown]
  - Anaemia [Not Recovered/Not Resolved]
  - Fall [Unknown]
  - Haematoma [Recovering/Resolving]
  - Periarthritis [Recovering/Resolving]
  - Migraine [Not Recovered/Not Resolved]
  - Coma [Recovered/Resolved]
  - Hydrocephalus [Unknown]
  - Klebsiella infection [Not Recovered/Not Resolved]
  - Parkinson^s disease [Unknown]
  - Constipation [Recovered/Resolved]
  - Urinary retention [Unknown]
  - Respiratory failure [Unknown]
  - Eyelid cyst [Unknown]
  - Treatment noncompliance [Unknown]
  - Vision blurred [Recovered/Resolved]
  - Intraventricular haemorrhage [Not Recovered/Not Resolved]
  - Ecchymosis [Unknown]
  - Urinary tract infection [Unknown]
  - Fall [Unknown]
  - Orthostatic hypotension [Not Recovered/Not Resolved]
  - Erythema [Unknown]
  - Depression [Recovered/Resolved]
  - Cerebral ventricle dilatation [Unknown]
  - Fatigue [Not Recovered/Not Resolved]
  - Staphylococcal bacteraemia [Not Recovered/Not Resolved]
  - Dysphagia [Not Recovered/Not Resolved]
  - Akinesia [Unknown]
  - Hypokalaemia [Not Recovered/Not Resolved]
  - Oral candidiasis [Unknown]
  - Epistaxis [Unknown]
  - Vertigo [Unknown]
  - Haemorrhagic stroke [Not Recovered/Not Resolved]
  - Subarachnoid haemorrhage [Unknown]
  - Delirium [Unknown]
  - Arteriovenous malformation [Unknown]
  - Device malfunction [Unknown]
  - Pollakiuria [Unknown]
  - Cerebral vasoconstriction [Recovered/Resolved]
  - Pneumonia staphylococcal [Recovered/Resolved]
  - Pulmonary embolism [Unknown]
  - Rash [Unknown]
  - Agitation [Unknown]
  - Headache [Unknown]
  - Incision site haemorrhage [Unknown]
  - Treatment noncompliance [Unknown]
  - Frustration tolerance decreased [Unknown]
  - Optic nerve injury [Recovered/Resolved]
  - Device malfunction [Unknown]
  - C-reactive protein increased [Unknown]
  - Tachycardia [Unknown]
  - Metabolic acidosis [Not Recovered/Not Resolved]
  - Hyperglycaemia [Unknown]

NARRATIVE: CASE EVENT DATE: 20090207
